FAERS Safety Report 6755976-4 (Version None)
Quarter: 2010Q2

REPORT INFORMATION
  Report Type: 
  Country: None (occurrence: None)
  Receive Date: 20100604
  Receipt Date: 20100524
  Transmission Date: 20101027
  Serious: Yes (Other)
  Sender: FDA-Public Use
  Company Number: PHHY2010US33156

PATIENT
  Sex: Female
  Weight: 86.4 kg

DRUGS (6)
  1. EXJADE [Suspect]
     Indication: IRON METABOLISM DISORDER
     Dosage: 500 MG, UNK
     Route: 048
     Dates: start: 20100421, end: 20100510
  2. ACTIGALL [Concomitant]
  3. ACYCLOVIR [Concomitant]
  4. ZOFRAN [Concomitant]
  5. PROZAC [Concomitant]
  6. PRILOSEC [Concomitant]

REACTIONS (4)
  - BLOOD CREATININE INCREASED [None]
  - GRAFT VERSUS HOST DISEASE [None]
  - HEPATIC FUNCTION ABNORMAL [None]
  - RENAL IMPAIRMENT [None]
